FAERS Safety Report 8321332-0 (Version None)
Quarter: 2012Q2

REPORT INFORMATION
  Report Type: 
  Country: None (occurrence: None)
  Receive Date: 20120430
  Receipt Date: 20120423
  Transmission Date: 20120825
  Serious: Yes (Other)
  Sender: FDA-Public Use
  Company Number: ES-UCBSA-055935

PATIENT
  Age: 85 Year
  Sex: Male

DRUGS (1)
  1. NEUPRO [Suspect]
     Indication: PARKINSON'S DISEASE
     Route: 062
     Dates: start: 20120320

REACTIONS (4)
  - HALLUCINATION [None]
  - MALAISE [None]
  - FALL [None]
  - AGITATION [None]
